FAERS Safety Report 7609847-1 (Version None)
Quarter: 2011Q3

REPORT INFORMATION
  Report Type: 
  Country: None (occurrence: None)
  Receive Date: 20110714
  Receipt Date: 20110708
  Transmission Date: 20111222
  Serious: Yes (Other)
  Sender: FDA-Public Use
  Company Number: US-ASTRAZENECA-2010SE09036

PATIENT
  Age: 72 Year
  Sex: Female

DRUGS (2)
  1. ARIMIDEX [Suspect]
     Indication: BREAST CANCER
     Route: 048
     Dates: start: 20081101, end: 20110617
  2. ASPIRIN [Concomitant]

REACTIONS (12)
  - MUSCULOSKELETAL STIFFNESS [None]
  - HYPERTENSION [None]
  - BLOOD GLUCOSE INCREASED [None]
  - WEIGHT INCREASED [None]
  - BACK PAIN [None]
  - BODY HEIGHT DECREASED [None]
  - OEDEMA PERIPHERAL [None]
  - BONE NEOPLASM [None]
  - CONSTIPATION [None]
  - SPINAL FRACTURE [None]
  - MULTIPLE ALLERGIES [None]
  - NAUSEA [None]
